FAERS Safety Report 12484730 (Version 1)
Quarter: 2016Q2

REPORT INFORMATION
  Report Type: Spontaneous
  Country: US (occurrence: US)
  Receive Date: 20160621
  Receipt Date: 20160621
  Transmission Date: 20160815
  Serious: No
  Sender: FDA-Public Use
  Company Number: US-JNJFOC-20160609568

PATIENT
  Sex: Female
  Weight: 53.98 kg

DRUGS (8)
  1. OMEPRAZOLE. [Concomitant]
     Active Substance: OMEPRAZOLE
     Indication: GASTRIC DISORDER
     Route: 048
     Dates: start: 2011
  2. WARFARIN [Concomitant]
     Active Substance: WARFARIN
     Indication: ANTICOAGULANT THERAPY
     Route: 048
     Dates: start: 2010
  3. DEXILANT [Concomitant]
     Active Substance: DEXLANSOPRAZOLE
     Indication: GASTRIC DISORDER
     Route: 048
     Dates: start: 2011
  4. SANDOZ FENTANYL MATRIX TRANSDERMAL SYSTEM [Suspect]
     Active Substance: FENTANYL
     Indication: PANCREATITIS CHRONIC
     Route: 062
     Dates: start: 2015
  5. GABAPENTIN. [Concomitant]
     Active Substance: GABAPENTIN
     Indication: RESTLESS LEGS SYNDROME
     Dosage: 2 IN THE MORNING 2 IN THE AFTERNOON AND 3 AT BED TIME
     Route: 048
     Dates: start: 2011
  6. NADOLOL. [Concomitant]
     Active Substance: NADOLOL
     Indication: CARDIAC DISORDER
     Route: 048
     Dates: start: 2008
  7. WARFARIN [Concomitant]
     Active Substance: WARFARIN
     Indication: ANTICOAGULANT THERAPY
     Route: 048
     Dates: start: 2010
  8. FENTANYL TRANSDERMAL SYSTEM [Suspect]
     Active Substance: FENTANYL
     Indication: PANCREATITIS CHRONIC
     Route: 062

REACTIONS (1)
  - Wrong technique in product usage process [Unknown]
